FAERS Safety Report 6423584-0 (Version None)
Quarter: 2009Q4

REPORT INFORMATION
  Report Type: 
  Country: None (occurrence: None)
  Receive Date: 20091028
  Receipt Date: 20091013
  Transmission Date: 20100525
  Serious: Yes (Hospitalization)
  Sender: FDA-Public Use
  Company Number: 1000009103

PATIENT
  Age: 51 Year
  Sex: Female
  Weight: 55 kg

DRUGS (2)
  1. MILNACIPRAN (MILNACIPRAN HYDROCHLORIDE) (CAPSULES) [Suspect]
     Indication: DEPRESSION
     Dosage: 50 MG (50 MG,1 IN 1 D),ORAL ; 75 MG (75 MG,1 IN 1 D),ORAL
     Route: 048
     Dates: start: 20090401, end: 20090426
  2. MILNACIPRAN (MILNACIPRAN HYDROCHLORIDE) (CAPSULES) [Suspect]
     Indication: DEPRESSION
     Dosage: 50 MG (50 MG,1 IN 1 D),ORAL ; 75 MG (75 MG,1 IN 1 D),ORAL
     Route: 048
     Dates: start: 20090427, end: 20090501

REACTIONS (2)
  - MIGRAINE [None]
  - VERTIGO [None]
